FAERS Safety Report 7970369-X (Version None)
Quarter: 2011Q4

REPORT INFORMATION
  Report Type: 
  Country: None (occurrence: None)
  Receive Date: 20111212
  Receipt Date: 20111129
  Transmission Date: 20120403
  Serious: Yes (Other)
  Sender: FDA-Public Use
  Company Number: MX-SANOFI-AVENTIS-2011SA078733

PATIENT
  Age: 77 Year
  Sex: Female
  Weight: 78 kg

DRUGS (10)
  1. LANTUS [Suspect]
     Indication: TYPE 2 DIABETES MELLITUS
     Route: 058
     Dates: start: 20090801, end: 20100101
  2. LANTUS [Suspect]
     Route: 058
     Dates: start: 20100101
  3. ATORVASTATIN [Concomitant]
     Route: 048
     Dates: end: 20110501
  4. AVALIDE [Concomitant]
     Route: 048
     Dates: start: 20110501
  5. METOPROLOL TARTRATE [Concomitant]
     Route: 048
     Dates: start: 20110501
  6. LANTUS [Suspect]
     Route: 058
     Dates: start: 20100101, end: 20110901
  7. LANTUS [Suspect]
     Route: 058
     Dates: start: 20110901
  8. ADALAT [Concomitant]
     Route: 048
     Dates: end: 20110501
  9. ZYLOPRIM [Concomitant]
  10. AMARYL [Suspect]
     Indication: TYPE 2 DIABETES MELLITUS
     Route: 048
     Dates: start: 20090801

REACTIONS (4)
  - OEDEMA PERIPHERAL [None]
  - RENAL IMPAIRMENT [None]
  - HYPERGLYCAEMIA [None]
  - URINARY TRACT INFECTION [None]
